FAERS Safety Report 6593714-9 (Version None)
Quarter: 2010Q1

REPORT INFORMATION
  Report Type: 
  Country: None (occurrence: None)
  Receive Date: 20100222
  Receipt Date: 20091211
  Transmission Date: 20100710
  Serious: No
  Sender: FDA-Public Use
  Company Number: US-BRISTOL-MYERS SQUIBB COMPANY-14892574

PATIENT
  Age: 66 Year
  Sex: Female
  Weight: 63 kg

DRUGS (10)
  1. ORENCIA [Suspect]
     Indication: RHEUMATOID ARTHRITIS
     Dosage: THREE INFUSION WITH LAST ONE ON 08DEC09
     Dates: start: 20091109
  2. PREDNISONE [Concomitant]
  3. CELEBREX [Concomitant]
  4. ATENOLOL [Concomitant]
  5. AMBIEN [Concomitant]
  6. FLUTICASONE PROPIONATE [Concomitant]
  7. OMEPRAZOLE [Concomitant]
  8. LIDODERM [Concomitant]
  9. VITAMIN [Concomitant]
  10. TRAMADOL [Concomitant]

REACTIONS (3)
  - DRUG INEFFECTIVE [None]
  - FATIGUE [None]
  - RHEUMATOID ARTHRITIS [None]
